FAERS Safety Report 12836249 (Version 1)
Quarter: 2016Q4

REPORT INFORMATION
  Report Type: Spontaneous
  Country: US (occurrence: US)
  Receive Date: 20161011
  Receipt Date: 20161011
  Transmission Date: 20170207
  Serious: No
  Sender: FDA-Public Use
  Company Number: None

PATIENT
  Age: 77 Year
  Sex: Male
  Weight: 105.24 kg

DRUGS (9)
  1. ATORVASTATIN [Concomitant]
     Active Substance: ATORVASTATIN
  2. ASPIRIN. [Concomitant]
     Active Substance: ASPIRIN
  3. BELSOMRA [Suspect]
     Active Substance: SUVOREXANT
     Indication: INSOMNIA
     Dosage: 1 PILL BEDTIME BY MOUTH?
     Route: 048
     Dates: start: 20160913, end: 20160923
  4. SENIOR MULTIVITAMIN [Concomitant]
  5. REQUIP [Concomitant]
     Active Substance: ROPINIROLE HYDROCHLORIDE
  6. DIGOXYN [Concomitant]
  7. LISONIPRIL [Concomitant]
  8. NEXIUM [Concomitant]
     Active Substance: ESOMEPRAZOLE MAGNESIUM
  9. SOTOLOL [Concomitant]
     Active Substance: SOTALOL

REACTIONS (2)
  - Nightmare [None]
  - Stupor [None]

NARRATIVE: CASE EVENT DATE: 20160922
